FAERS Safety Report 9508784 (Version 1)
Quarter: 2013Q1

REPORT INFORMATION
  Report Type: Spontaneous
  Country: US (occurrence: None)
  Receive Date: 20130305
  Receipt Date: 20130305
  Transmission Date: 20140127
  Serious: Yes (Other)
  Sender: FDA-Public Use
  Company Number: 163-21880-12081913

PATIENT
  Age: 59 Year
  Sex: Male

DRUGS (13)
  1. REVLIMID (LENALIDOMIDE)(15 MILLIGRAM, CAPSULES) [Suspect]
     Indication: PLASMA CELL MYELOMA
     Dosage: 15 MG, 21 IN 28 D, PO
     Route: 048
     Dates: start: 20090909
  2. AREDIA (PAMIDRONATE DISODIUM) (UNKNOWN) [Concomitant]
  3. ASPIRIN(ACETYLSALICYLIC ACID) (UNKNOWN) [Concomitant]
  4. CALCIUM WITH VITAMIN D(CALCIUM WITH VITAMIN U)(UNKNOWN) [Concomitant]
  5. CIALIS(TADALAFIL)(UNKNOWN) [Concomitant]
  6. DIOVAN(VALSARTAN)(UNKNOWN) [Concomitant]
  7. FOLIC ACID(FOLIC ACID)(UNKNOWN) [Concomitant]
  8. MAGNESIUM(MAGNESIUM)(UNKNOWN) [Concomitant]
  9. MULTIVITAMINS(MULTIVITAMINS)(UNKNOWN) [Concomitant]
  10. OMEPRAZOLE(OMEPRAZOLE)(UNKNOWN) [Concomitant]
  11. TYLENOL(PARACETAMOL)(UNKNOWN) [Concomitant]
  12. VITAMIN B(VITAMIN B)(UNKNOWN) [Concomitant]
  13. ZYRTEC(CETIRIZINE HYDROCHLORIDE) [Concomitant]

REACTIONS (1)
  - Gallbladder disorder [None]
